FAERS Safety Report 9124160 (Version 2)
Quarter: 2013Q2

REPORT INFORMATION
  Report Type: Spontaneous
  Country: DE (occurrence: DE)
  Receive Date: 20130227
  Receipt Date: 20130509
  Transmission Date: 20140414
  Serious: Yes (Other)
  Sender: FDA-Public Use
  Company Number: DE-TEVA-387008GER

PATIENT
  Sex: Male

DRUGS (2)
  1. PENTOXIFYLLIN ABZ 600 MG RETARDTABLETTEN [Suspect]
     Indication: SUDDEN HEARING LOSS
     Route: 048
  2. PENTOXIFYLLIN ABZ 600 MG RETARDTABLETTEN [Suspect]
     Indication: TINNITUS

REACTIONS (1)
  - Intestinal haemorrhage [Recovered/Resolved]
